FAERS Safety Report 11612065 (Version 1)
Quarter: 2015Q4

REPORT INFORMATION
  Report Type: Spontaneous
  Country: US (occurrence: US)
  Receive Date: 20151008
  Receipt Date: 20151008
  Transmission Date: 20160304
  Serious: Yes (Other)
  Sender: FDA-Public Use
  Company Number: US-GLAXOSMITHKLINE-US2015GSK142587

PATIENT
  Sex: Female

DRUGS (2)
  1. LAMICTAL [Suspect]
     Active Substance: LAMOTRIGINE
  2. LAMOTRIGINE. [Suspect]
     Active Substance: LAMOTRIGINE

REACTIONS (7)
  - Dizziness [Recovered/Resolved]
  - Unresponsive to stimuli [Unknown]
  - Tongue biting [Unknown]
  - Altered state of consciousness [Unknown]
  - Electroencephalogram abnormal [Unknown]
  - Abnormal behaviour [Unknown]
  - Seizure [Unknown]
